FAERS Safety Report 21000859 (Version 1)
Quarter: 2022Q2

REPORT INFORMATION
  Report Type: Spontaneous
  Country: FR (occurrence: FR)
  Receive Date: 20220624
  Receipt Date: 20220624
  Transmission Date: 20220721
  Serious: Yes (Other)
  Sender: FDA-Public Use
  Company Number: FR-AMGEN-FRASP2022104935

PATIENT
  Age: 28 Year
  Sex: Female

DRUGS (3)
  1. PEGFILGRASTIM [Suspect]
     Active Substance: PEGFILGRASTIM
     Indication: Endocrine neoplasm
     Dosage: 25 GRAM PER LITRE
     Route: 065
  2. CISPLATIN [Suspect]
     Active Substance: CISPLATIN
     Indication: Endocrine neoplasm
     Dosage: 100 MILLIGRAM/SQ. METER
     Route: 065
  3. ETOPOSIDE [Suspect]
     Active Substance: ETOPOSIDE
     Indication: Endocrine neoplasm
     Dosage: 100 MILLIGRAM/SQ. METER, QD (D1, D2, D3)
     Route: 065

REACTIONS (2)
  - Hyperleukocytosis [Unknown]
  - Extremity necrosis [Unknown]
